FAERS Safety Report 15768663 (Version 1)
Quarter: 2018Q4

REPORT INFORMATION
  Report Type: Report from Study
  Country: US (occurrence: US)
  Receive Date: 20181228
  Receipt Date: 20181228
  Transmission Date: 20190205
  Serious: Yes (Disabling)
  Sender: FDA-Public Use
  Company Number: US-GILEAD-2018-0381081

PATIENT
  Age: 87 Year
  Sex: Female

DRUGS (11)
  1. IDELALISIB [Suspect]
     Active Substance: IDELALISIB
     Indication: CHRONIC LYMPHOCYTIC LEUKAEMIA
     Dosage: 150 MG, QD
     Route: 048
     Dates: start: 20160730
  2. LASIX [Concomitant]
     Active Substance: FUROSEMIDE
  3. MULTIVIT [VITAMINS NOS] [Concomitant]
  4. XARELTO [Concomitant]
     Active Substance: RIVAROXABAN
  5. LESCOL [Concomitant]
     Active Substance: FLUVASTATIN SODIUM
  6. POTASSIUM CHLORIDE. [Concomitant]
     Active Substance: POTASSIUM CHLORIDE
  7. FLUVASTATIN [Concomitant]
     Active Substance: FLUVASTATIN SODIUM
  8. FISH OIL [Concomitant]
     Active Substance: FISH OIL
  9. LANOXIN [Concomitant]
     Active Substance: DIGOXIN
  10. VITAMIN D [Concomitant]
     Active Substance: CHOLECALCIFEROL
  11. SYNTHROID [Concomitant]
     Active Substance: LEVOTHYROXINE SODIUM

REACTIONS (4)
  - Insomnia [Not Recovered/Not Resolved]
  - Cough [Not Recovered/Not Resolved]
  - Muscular weakness [Not Recovered/Not Resolved]
  - Peripheral swelling [Not Recovered/Not Resolved]
